FAERS Safety Report 20904135 (Version 1)
Quarter: 2022Q2

REPORT INFORMATION
  Report Type: Spontaneous
  Country: CA (occurrence: CA)
  Receive Date: 20220602
  Receipt Date: 20220602
  Transmission Date: 20220720
  Serious: Yes (Hospitalization)
  Sender: FDA-Public Use
  Company Number: None

PATIENT
  Age: 67 Year
  Sex: Female

DRUGS (1)
  1. INSULIN HUMAN [Suspect]
     Active Substance: INSULIN HUMAN
     Indication: Diabetes mellitus
     Dosage: UNK
     Route: 058

REACTIONS (7)
  - Balance disorder [Unknown]
  - Coeliac disease [Unknown]
  - Fall [Unknown]
  - Injury [Unknown]
  - Ulcer [Unknown]
  - Wrist fracture [Unknown]
  - Blood glucose increased [Unknown]
